FAERS Safety Report 8286677-1 (Version None)
Quarter: 2012Q2

REPORT INFORMATION
  Report Type: 
  Country: None (occurrence: None)
  Receive Date: 20120416
  Receipt Date: 20120402
  Transmission Date: 20120825
  Serious: Yes (Other)
  Sender: FDA-Public Use
  Company Number: US-SANOFI-AVENTIS-2012SA023090

PATIENT
  Age: 55 Year
  Sex: Male
  Weight: 127 kg

DRUGS (12)
  1. XANAX [Suspect]
     Indication: ANXIETY
     Route: 048
     Dates: start: 19950501
  2. TAMSULOSIN HCL [Concomitant]
  3. PLAVIX [Suspect]
     Dates: end: 20120313
  4. METOPROLOL TARTRATE [Concomitant]
  5. ZOCOR [Concomitant]
  6. CYMBALTA [Concomitant]
  7. LANSOPRAZOLE [Concomitant]
  8. ZOCOR [Concomitant]
  9. XANAX [Suspect]
     Indication: PANIC ATTACK
     Route: 048
     Dates: start: 19950501
  10. ISOSORBIDE DINITRATE [Concomitant]
  11. XANAX [Suspect]
     Indication: DEPRESSION
     Route: 048
     Dates: start: 19950501
  12. ASPIRIN [Concomitant]
     Indication: THROMBOSIS PROPHYLAXIS

REACTIONS (1)
  - RENAL DISORDER [None]
